FAERS Safety Report 7810028-7 (Version None)
Quarter: 2011Q4

REPORT INFORMATION
  Report Type: 
  Country: None (occurrence: None)
  Receive Date: 20111012
  Receipt Date: 20110706
  Transmission Date: 20120403
  Serious: No
  Sender: FDA-Public Use
  Company Number: US-GLAXOSMITHKLINE-A0935130A

PATIENT
  Age: 74 Year
  Sex: Male

DRUGS (14)
  1. HYDROCHLOROTHIAZIDE [Concomitant]
  2. VITAMIN TAB [Concomitant]
  3. FLAXSEED OIL [Concomitant]
  4. LOTREL [Concomitant]
  5. UNSPECIFIED MEDICATION [Suspect]
  6. LEVOTHYROXINE SODIUM [Concomitant]
  7. FISH OIL [Concomitant]
  8. CINNAMON [Concomitant]
  9. AMLODIPINE [Concomitant]
  10. JALYN [Suspect]
     Indication: BENIGN PROSTATIC HYPERPLASIA
     Dosage: 1CAP PER DAY
     Route: 048
     Dates: start: 20110626
  11. NIASPAN [Concomitant]
  12. SAW PALMETTO [Concomitant]
  13. SIMVASTATIN [Concomitant]
  14. ONE A DAY VITAMINS [Concomitant]

REACTIONS (5)
  - MUSCLE FATIGUE [None]
  - MYALGIA [None]
  - PAIN IN EXTREMITY [None]
  - RESTLESS LEGS SYNDROME [None]
  - BACK PAIN [None]
